FAERS Safety Report 4548725-1 (Version None)
Quarter: 2004Q4

REPORT INFORMATION
  Report Type: 
  Country: None (occurrence: None)
  Receive Date: 20041220
  Receipt Date: 20040216
  Transmission Date: 20050328
  Serious: Yes (Hospitalization)
  Sender: FDA-Public Use
  Company Number: USA040259518

PATIENT
  Sex: Female

DRUGS (4)
  1. HUMULIN R [Suspect]
     Dates: start: 20020218
  2. HUMULIN N [Suspect]
  3. REGLAN [Concomitant]
  4. TYLENOL [Concomitant]

REACTIONS (4)
  - BLOOD GLUCOSE DECREASED [None]
  - BLOOD GLUCOSE INCREASED [None]
  - IMPAIRED GASTRIC EMPTYING [None]
  - WEIGHT DECREASED [None]
